FAERS Safety Report 11691699 (Version 15)
Quarter: 2025Q4

REPORT INFORMATION
  Report Type: Report from Study
  Country: CA (occurrence: CA)
  Receive Date: 20151102
  Receipt Date: 20251016
  Transmission Date: 20260117
  Serious: Yes (Hospitalization, Other)
  Sender: ROCHE
  Company Number: CA-ROCHE-1654323

PATIENT
  Age: 61 Year
  Sex: Female
  Weight: 109.0 kg

DRUGS (14)
  1. XOLAIR [Suspect]
     Active Substance: OMALIZUMAB
     Indication: Asthma
     Dosage: 150 UG, EVERY 4 WEEKS
     Route: 058
     Dates: start: 20131126
  2. XOLAIR [Suspect]
     Active Substance: OMALIZUMAB
     Dosage: 300 MG, EVERY 4 WEEKS
     Route: 058
     Dates: start: 20140121
  3. XOLAIR [Suspect]
     Active Substance: OMALIZUMAB
     Dosage: UNK
     Route: 058
     Dates: start: 20160329
  4. XOLAIR [Suspect]
     Active Substance: OMALIZUMAB
     Dosage: 150 UG, EVERY 4 WEEKS
     Route: 058
     Dates: start: 20121101
  5. XOLAIR [Suspect]
     Active Substance: OMALIZUMAB
     Dosage: UNK
     Route: 058
     Dates: start: 20140210
  6. XOLAIR [Suspect]
     Active Substance: OMALIZUMAB
     Dosage: UNK
     Route: 058
     Dates: start: 20160920
  7. XOLAIR [Suspect]
     Active Substance: OMALIZUMAB
     Dosage: UNK
     Route: 058
     Dates: start: 20170926
  8. XOLAIR [Suspect]
     Active Substance: OMALIZUMAB
     Route: 058
     Dates: start: 20190205
  9. XOLAIR [Suspect]
     Active Substance: OMALIZUMAB
     Route: 058
  10. XOLAIR [Suspect]
     Active Substance: OMALIZUMAB
     Route: 058
  11. ADVAIR HFA [Concomitant]
     Active Substance: FLUTICASONE PROPIONATE\SALMETEROL XINAFOATE
     Indication: Product used for unknown indication
     Route: 065
  12. SPIRIVA [Concomitant]
     Active Substance: TIOTROPIUM BROMIDE MONOHYDRATE
     Indication: Product used for unknown indication
     Route: 065
  13. SINGULAIR [Concomitant]
     Active Substance: MONTELUKAST SODIUM
     Indication: Product used for unknown indication
     Route: 065
  14. VENTOLIN [Concomitant]
     Active Substance: ALBUTEROL SULFATE
     Indication: Product used for unknown indication
     Route: 065

REACTIONS (31)
  - Chronic obstructive pulmonary disease [Unknown]
  - Influenza [Unknown]
  - Bronchitis [Unknown]
  - Dyspnoea at rest [Unknown]
  - Forced expiratory volume decreased [Unknown]
  - Asthma [Unknown]
  - Pneumonia [Unknown]
  - Cough [Unknown]
  - Seasonal allergy [Unknown]
  - Dyspnoea exertional [Unknown]
  - Obstructive airways disorder [Unknown]
  - Wheezing [Unknown]
  - Dyspnoea [Unknown]
  - Chest discomfort [Unknown]
  - Respiratory rate increased [Unknown]
  - Illness [Unknown]
  - Anxiety [Unknown]
  - Claustrophobia [Unknown]
  - Productive cough [Unknown]
  - Nasal pruritus [Unknown]
  - Eye pruritus [Unknown]
  - Throat irritation [Unknown]
  - Lacrimation increased [Unknown]
  - Blood immunoglobulin G decreased [Unknown]
  - Middle insomnia [Unknown]
  - Concussion [Unknown]
  - Dizziness [Unknown]
  - Pulmonary residual volume increased [Unknown]
  - Total lung capacity increased [Unknown]
  - Lung diffusion test decreased [Unknown]
  - Lung hyperinflation [Unknown]

NARRATIVE: CASE EVENT DATE: 20140121
